FAERS Safety Report 12485241 (Version 1)
Quarter: 2016Q2

REPORT INFORMATION
  Report Type: Spontaneous
  Country: FR (occurrence: FR)
  Receive Date: 20160621
  Receipt Date: 20160621
  Transmission Date: 20160815
  Serious: Yes (Disabling, Congenital Anomaly, Other)
  Sender: FDA-Public Use
  Company Number: FR-ABBVIE-16P-056-1657413-00

PATIENT
  Sex: Male

DRUGS (1)
  1. DEPAKINE [Suspect]
     Active Substance: VALPROATE SODIUM
     Indication: MATERNAL EXPOSURE TIMING UNSPECIFIED
     Route: 064

REACTIONS (14)
  - Nystagmus [Not Recovered/Not Resolved]
  - Cerebral ventricle dilatation [Not Recovered/Not Resolved]
  - Hypocalcaemia [Unknown]
  - Skull malformation [Unknown]
  - Congenital oral malformation [Unknown]
  - Epilepsy [Recovered/Resolved]
  - Macrocephaly [Unknown]
  - Hypotonia [Not Recovered/Not Resolved]
  - Polyhydramnios [Unknown]
  - Foetal exposure during pregnancy [Unknown]
  - Intellectual disability [Unknown]
  - Developmental delay [Not Recovered/Not Resolved]
  - Fragile X syndrome [Unknown]
  - Dysmorphism [Unknown]

NARRATIVE: CASE EVENT DATE: 2003
